FAERS Safety Report 7411291-7 (Version None)
Quarter: 2011Q2

REPORT INFORMATION
  Report Type: 
  Country: None (occurrence: None)
  Receive Date: 20110413
  Receipt Date: 20100609
  Transmission Date: 20111010
  Serious: Yes (Other)
  Sender: FDA-Public Use
  Company Number: US-BRISTOL-MYERS SQUIBB COMPANY-15122187

PATIENT
  Age: 54 Year
  Sex: Male

DRUGS (3)
  1. ERBITUX [Suspect]
     Indication: TONSIL CANCER
     Dosage: LOADING DOSE:400MG/M2
     Route: 042
     Dates: start: 20100512
  2. ERBITUX [Suspect]
     Indication: HEAD AND NECK CANCER
     Dosage: LOADING DOSE:400MG/M2
     Route: 042
     Dates: start: 20100512
  3. ZANTAC [Concomitant]

REACTIONS (1)
  - INFUSION RELATED REACTION [None]
